FAERS Safety Report 10217505 (Version 1)
Quarter: 2014Q2

REPORT INFORMATION
  Report Type: Spontaneous
  Country: MX (occurrence: MX)
  Receive Date: 20140604
  Receipt Date: 20140604
  Transmission Date: 20141212
  Serious: Yes (Death, Other)
  Sender: FDA-Public Use
  Company Number: MX-UCBSA-122804

PATIENT
  Age: 43 Year
  Sex: Male

DRUGS (5)
  1. VIMPAT [Suspect]
     Dosage: 50 MG, 2X/DAY (BID)
     Route: 048
     Dates: start: 20140416, end: 20140509
  2. LEVETIRACETAM [Concomitant]
     Indication: EPILEPSY
     Dosage: 500 MG, 2X/DAY (BID)
     Route: 048
     Dates: end: 20140509
  3. TASEDAN [Concomitant]
     Indication: EPILEPSY
     Dosage: 2 MG, ONCE DAILY (QD)
     Route: 048
     Dates: end: 20140509
  4. VALDOXAN [Concomitant]
     Indication: EPILEPSY
     Dosage: 25 MG, ONCE DAILY (QD)
     Route: 048
     Dates: end: 20140509
  5. METFORMIN [Concomitant]
     Indication: EPILEPSY
     Dosage: 850 MG, ONCE DAILY (QD)
     Route: 048
     Dates: end: 20140509

REACTIONS (1)
  - Myocardial infarction [Fatal]
